FAERS Safety Report 4459124-5 (Version None)
Quarter: 2004Q3

REPORT INFORMATION
  Report Type: 
  Country: None (occurrence: None)
  Receive Date: 20040920
  Receipt Date: 20040920
  Transmission Date: 20050211
  Serious: Yes (Life-Threatening)
  Sender: FDA-Public Use
  Company Number: None

PATIENT
  Sex: Female
  Weight: 73.0291 kg

DRUGS (1)
  1. COPAXONE 20 MG [Suspect]
     Indication: MULTIPLE SCLEROSIS
     Dosage: 20MG SUBQ QD

REACTIONS (6)
  - DRUG HYPERSENSITIVITY [None]
  - NAUSEA [None]
  - OEDEMA [None]
  - PRURITUS [None]
  - URTICARIA [None]
  - VOMITING [None]
